FAERS Safety Report 6230682-3 (Version None)
Quarter: 2009Q2

REPORT INFORMATION
  Report Type: 
  Country: None (occurrence: None)
  Receive Date: 20090616
  Receipt Date: 20090610
  Transmission Date: 20091009
  Serious: Yes (Death)
  Sender: FDA-Public Use
  Company Number: US-CELGENEUS-163-21880-09050168

PATIENT
  Sex: Female

DRUGS (2)
  1. REVLIMID [Suspect]
     Indication: MYELODYSPLASTIC SYNDROME
     Route: 048
     Dates: start: 20090301, end: 20090401
  2. REVLIMID [Suspect]
     Route: 048
     Dates: start: 20090301, end: 20090301

REACTIONS (2)
  - ACUTE LEUKAEMIA [None]
  - GRAFT VERSUS HOST DISEASE [None]
